FAERS Safety Report 5617536-8 (Version None)
Quarter: 2008Q1

REPORT INFORMATION
  Report Type: 
  Country: None (occurrence: None)
  Receive Date: 20080207
  Receipt Date: 20080204
  Transmission Date: 20080703
  Serious: Yes (Hospitalization)
  Sender: FDA-Public Use
  Company Number: DE-JNJFOC-20071105426

PATIENT
  Sex: Male
  Weight: 70 kg

DRUGS (10)
  1. TMC114 [Suspect]
     Route: 048
  2. TMC114 [Suspect]
     Indication: HIV INFECTION
     Route: 048
  3. NORVIR [Suspect]
     Indication: HIV INFECTION
     Route: 048
  4. TRUVADA [Concomitant]
     Indication: HIV INFECTION
     Route: 048
  5. LYRICA [Concomitant]
     Indication: NEUROPATHY PERIPHERAL
     Route: 048
  6. BETAISODONA [Concomitant]
     Route: 061
  7. LACTULOSE [Concomitant]
     Route: 048
  8. OXAZEPAM [Concomitant]
     Indication: SOMNOLENCE
     Route: 048
  9. MOCLOBEMID [Concomitant]
     Indication: DEPRESSION
     Route: 048
  10. ALDARA OINTMENT [Concomitant]
     Indication: ANOGENITAL WARTS
     Route: 061

REACTIONS (1)
  - OSTEONECROSIS [None]
